FAERS Safety Report 10176026 (Version 1)
Quarter: 2014Q2

REPORT INFORMATION
  Report Type: Spontaneous
  Country: US (occurrence: US)
  Receive Date: 20140516
  Receipt Date: 20140516
  Transmission Date: 20141212
  Serious: Yes (Other)
  Sender: FDA-Public Use
  Company Number: US-JNJFOC-20140506445

PATIENT
  Sex: Female

DRUGS (1)
  1. TOPAMAX [Suspect]
     Indication: MIGRAINE
     Route: 048

REACTIONS (11)
  - Obsessive-compulsive disorder [Unknown]
  - Depression [Unknown]
  - Psychomotor hyperactivity [Unknown]
  - Abnormal behaviour [Not Recovered/Not Resolved]
  - Feeling drunk [Recovered/Resolved]
  - Fatigue [Unknown]
  - Fatigue [Unknown]
  - Feeling jittery [Unknown]
  - Alcoholism [Not Recovered/Not Resolved]
  - Dysgeusia [Not Recovered/Not Resolved]
  - Memory impairment [Unknown]
